FAERS Safety Report 22528015 (Version 1)
Quarter: 2023Q2

REPORT INFORMATION
  Report Type: Spontaneous
  Country: US (occurrence: US)
  Receive Date: 20230606
  Receipt Date: 20230606
  Transmission Date: 20230722
  Serious: Yes (Other)
  Sender: FDA-Public Use
  Company Number: US-AMGEN-USASP2023093174

PATIENT
  Age: 19 Year
  Sex: Male

DRUGS (3)
  1. RITUXIMAB [Suspect]
     Active Substance: RITUXIMAB
     Indication: Transplant rejection
     Dosage: UNK
     Route: 065
     Dates: start: 202112
  2. BORTEZOMIB [Concomitant]
     Active Substance: BORTEZOMIB
     Indication: Transplant rejection
     Dosage: UNK
     Route: 065
     Dates: start: 202112
  3. THYMOGLOBULINE [Concomitant]
     Active Substance: LAPINE T-LYMPHOCYTE IMMUNE GLOBULIN
     Indication: Transplant rejection
     Dosage: UNK
     Route: 065
     Dates: start: 202112

REACTIONS (2)
  - Donor specific antibody present [Recovered/Resolved]
  - Off label use [Unknown]

NARRATIVE: CASE EVENT DATE: 20211201
